FAERS Safety Report 9287860 (Version 1)
Quarter: 2013Q2

REPORT INFORMATION
  Report Type: Spontaneous
  Country: US (occurrence: None)
  Receive Date: 20130513
  Receipt Date: 20130513
  Transmission Date: 20140414
  Serious: Yes (Death)
  Sender: FDA-Public Use
  Company Number: None

PATIENT
  Age: 73 Year
  Sex: Male

DRUGS (1)
  1. TEMAZEPAM [Suspect]
     Indication: SLEEP DISORDER
     Dosage: DON^T KNOW PO
     Route: 048
     Dates: start: 20120516, end: 20120516

REACTIONS (2)
  - Completed suicide [None]
  - Feeling abnormal [None]
